FAERS Safety Report 19002243 (Version 1)
Quarter: 2021Q1

REPORT INFORMATION
  Report Type: Report from Study
  Country: US (occurrence: US)
  Receive Date: 20210312
  Receipt Date: 20210312
  Transmission Date: 20210420
  Serious: Yes (Hospitalization)
  Sender: FDA-Public Use
  Company Number: US-GILEAD-2021-0519975

PATIENT
  Age: 32 Year
  Sex: Female

DRUGS (2)
  1. TRIKAFTA [Concomitant]
     Active Substance: ELEXACAFTOR\IVACAFTOR\TEZACAFTOR
     Dosage: TAKE 1 ORANGE TABLET EVERY MORNING AND DISCARD ALL EVENING (BLUE) TABLETS. TAKE WITH FAT?CONTAINING
  2. AZTREONAM LYSINE [Suspect]
     Active Substance: AZTREONAM LYSINE
     Indication: CYSTIC FIBROSIS
     Dosage: 1 VIAL WITH ALTERA NEBULIZER THREE TIMES A DAY, EVERY OTHER MONTH
     Route: 055

REACTIONS (1)
  - Infection [Unknown]
